FAERS Safety Report 4742299-8 (Version None)
Quarter: 2005Q3

REPORT INFORMATION
  Report Type: 
  Country: None (occurrence: None)
  Receive Date: 20050811
  Receipt Date: 20050404
  Transmission Date: 20060218
  Serious: Yes (Hospitalization)
  Sender: FDA-Public Use
  Company Number: US-GLAXOSMITHKLINE-A0552636A

PATIENT
  Age: 30 Year
  Sex: Female

DRUGS (2)
  1. PAXIL CR [Suspect]
     Indication: PANIC DISORDER
     Dosage: 25MG PER DAY
     Route: 048
     Dates: start: 20040101, end: 20050101
  2. PAXIL [Suspect]
     Indication: PANIC DISORDER
     Route: 048
     Dates: start: 20050101, end: 20050301

REACTIONS (4)
  - CRYING [None]
  - DISORIENTATION [None]
  - PARAESTHESIA [None]
  - VERTIGO [None]
